FAERS Safety Report 10361367 (Version 1)
Quarter: 2014Q3

REPORT INFORMATION
  Report Type: Report from Study
  Country: US (occurrence: US)
  Receive Date: 20140805
  Receipt Date: 20140805
  Transmission Date: 20150326
  Serious: Yes (Other)
  Sender: FDA-Public Use
  Company Number: US-ROCHE-1444666

PATIENT
  Age: 54 Year
  Sex: Male
  Weight: 88.1 kg

DRUGS (3)
  1. CORTEF [Concomitant]
     Active Substance: HYDROCORTISONE
     Dosage: 1 TABLET BY MOUTH EVERY MORNING AND AFTERNOON
     Route: 048
  2. NUTROPIN AQ [Suspect]
     Active Substance: SOMATROPIN
     Indication: GROWTH HORMONE DEFICIENCY
     Route: 058
     Dates: start: 20100226
  3. LIPITOR [Concomitant]
     Active Substance: ATORVASTATIN CALCIUM
     Dosage: 1 TABLET BY MOUTH EVERY OTHER DAY
     Route: 048

REACTIONS (6)
  - Insulin-like growth factor increased [Unknown]
  - Weight increased [Unknown]
  - Cardiac murmur [Unknown]
  - Fatigue [Unknown]
  - Myalgia [Unknown]
  - Arthralgia [Unknown]

NARRATIVE: CASE EVENT DATE: 201307
